FAERS Safety Report 22342446 (Version 1)
Quarter: 2023Q2

REPORT INFORMATION
  Report Type: Spontaneous
  Country: US (occurrence: US)
  Receive Date: 20230519
  Receipt Date: 20230519
  Transmission Date: 20230722
  Serious: Yes (Other)
  Sender: FDA-Public Use
  Company Number: US-SPECGX-T202301160

PATIENT
  Sex: Female
  Weight: 60 kg

DRUGS (15)
  1. METHADOSE [Suspect]
     Active Substance: METHADONE HYDROCHLORIDE
     Indication: Drug dependence
     Dosage: 65 MILLIGRAM
     Route: 065
     Dates: start: 20190305
  2. METHADOSE [Suspect]
     Active Substance: METHADONE HYDROCHLORIDE
     Dosage: 95 MILLIGRAM, QD
     Route: 065
     Dates: start: 2019
  3. METHADOSE [Suspect]
     Active Substance: METHADONE HYDROCHLORIDE
     Dosage: 57 MILLIGRAM, QD
     Route: 065
     Dates: start: 2022
  4. METHADOSE [Suspect]
     Active Substance: METHADONE HYDROCHLORIDE
     Dosage: 80 MILLIGRAM, QD
     Route: 065
     Dates: start: 2023
  5. METHADOSE [Suspect]
     Active Substance: METHADONE HYDROCHLORIDE
     Dosage: 80 MILLIGRAM, QD (80 MG SPLIT DOSE (40 MG IN THE MORNING AND 40 MG AT NIGHT)
     Route: 065
     Dates: start: 2023
  6. METHADOSE [Suspect]
     Active Substance: METHADONE HYDROCHLORIDE
     Dosage: 80 MILLIGRAM (CLEAR LIQUID)
     Route: 065
     Dates: start: 2023
  7. METHADOSE [Suspect]
     Active Substance: METHADONE HYDROCHLORIDE
     Dosage: UNK (PINK LIQUID)
     Route: 065
     Dates: start: 2023
  8. METHADOSE [Suspect]
     Active Substance: METHADONE HYDROCHLORIDE
     Dosage: 40 MILLIGRAM, QD
     Route: 065
     Dates: start: 2023
  9. METHADOSE [Suspect]
     Active Substance: METHADONE HYDROCHLORIDE
     Dosage: 30 MILLIGRAM, QD
     Route: 065
     Dates: start: 2023
  10. METHADOSE [Suspect]
     Active Substance: METHADONE HYDROCHLORIDE
     Dosage: 30 MILLIGRAM, QD (CLEAR LIQUID)
     Route: 065
     Dates: start: 2023
  11. STADOL [Suspect]
     Active Substance: BUTORPHANOL TARTRATE
     Indication: Product used for unknown indication
     Dosage: UNK
     Route: 065
  12. ZOLOFT [Concomitant]
     Active Substance: SERTRALINE HYDROCHLORIDE
     Indication: Anxiety
     Dosage: 50 MILLIGRAM, QD
     Route: 065
  13. ZOLOFT [Concomitant]
     Active Substance: SERTRALINE HYDROCHLORIDE
     Indication: Depression
  14. TYLENOL [Concomitant]
     Active Substance: ACETAMINOPHEN
     Indication: Product used for unknown indication
     Dosage: UNK
     Route: 065
  15. IBUPROFEN [Concomitant]
     Active Substance: IBUPROFEN
     Indication: Product used for unknown indication
     Dosage: UNK
     Route: 065

REACTIONS (5)
  - Premature delivery [Unknown]
  - Drug withdrawal syndrome [Recovering/Resolving]
  - Drug screen negative [Unknown]
  - Exposure during pregnancy [Unknown]
  - Drug ineffective [Unknown]

NARRATIVE: CASE EVENT DATE: 20190101
